FAERS Safety Report 6092672-3 (Version None)
Quarter: 2009Q1

REPORT INFORMATION
  Report Type: 
  Country: None (occurrence: None)
  Receive Date: 20090223
  Receipt Date: 20090223
  Transmission Date: 20090719
  Serious: Yes (Hospitalization)
  Sender: FDA-Public Use
  Company Number: None

PATIENT
  Age: 21 Year
  Sex: Female
  Weight: 49.8957 kg

DRUGS (1)
  1. YAZ [Suspect]
     Indication: PREMENSTRUAL SYNDROME
     Dosage: 28 TABLETS 1X/DAY PO
     Route: 048
     Dates: start: 20081109, end: 20090204

REACTIONS (8)
  - DIZZINESS [None]
  - EPISTAXIS [None]
  - HEADACHE [None]
  - LOSS OF CONSCIOUSNESS [None]
  - MOUTH HAEMORRHAGE [None]
  - NECK PAIN [None]
  - PREMENSTRUAL SYNDROME [None]
  - TOOTH DISORDER [None]
